FAERS Safety Report 11112433 (Version 1)
Quarter: 2015Q2

REPORT INFORMATION
  Report Type: Spontaneous
  Country: None (occurrence: None)
  Receive Date: 20150513
  Receipt Date: 20150513
  Transmission Date: 20150821
  Serious: Yes (Other)
  Sender: FDA-Public Use
  Company Number: None

PATIENT
  Age: 68 Year
  Sex: Female

DRUGS (2)
  1. MIGRAINE MEDS [Concomitant]
  2. CHIGGEREX2XPOWER 10% SCHERER LABS [Suspect]
     Active Substance: BENZOCAINE
     Indication: ARTHROPOD BITE
     Route: 061
     Dates: start: 20150507, end: 20150508

REACTIONS (6)
  - Application site vesicles [None]
  - Application site erythema [None]
  - Application site swelling [None]
  - Application site burn [None]
  - Skin discolouration [None]
  - Hypersensitivity [None]

NARRATIVE: CASE EVENT DATE: 20150508
